FAERS Safety Report 6146268-5 (Version None)
Quarter: 2009Q2

REPORT INFORMATION
  Report Type: 
  Country: None (occurrence: None)
  Receive Date: 20090406
  Receipt Date: 20090406
  Transmission Date: 20091009
  Serious: Yes (Disabling, Other)
  Sender: FDA-Public Use
  Company Number: None

PATIENT
  Age: 58 Year
  Sex: Female
  Weight: 81.6475 kg

DRUGS (2)
  1. SIMVASTATIN [Suspect]
     Indication: BLOOD CHOLESTEROL INCREASED
     Dosage: 20 MG EVERY DAY MOUTH
     Route: 048
     Dates: start: 20080612, end: 20080710
  2. LIPITOR [Suspect]
     Dosage: 10 MG EVERY M-W-F MOUTH
     Route: 048
     Dates: start: 20080717, end: 20080815

REACTIONS (5)
  - BALANCE DISORDER [None]
  - MUSCLE SPASMS [None]
  - MUSCULAR WEAKNESS [None]
  - MYALGIA [None]
  - WALKING AID USER [None]
